FAERS Safety Report 6347178-0 (Version None)
Quarter: 2009Q3

REPORT INFORMATION
  Report Type: 
  Country: None (occurrence: None)
  Receive Date: 20090910
  Receipt Date: 20090901
  Transmission Date: 20100115
  Serious: Yes (Hospitalization)
  Sender: FDA-Public Use
  Company Number: PHHY2009CA37632

PATIENT
  Sex: Male

DRUGS (2)
  1. ACLASTA [Suspect]
     Dosage: UNK
     Dates: start: 20081008
  2. ACLASTA [Suspect]
     Dosage: UNK

REACTIONS (1)
  - CEREBROVASCULAR ACCIDENT [None]
